FAERS Safety Report 5238060-0 (Version None)
Quarter: 2007Q1

REPORT INFORMATION
  Report Type: 
  Country: None (occurrence: None)
  Receive Date: 20070215
  Receipt Date: 20070206
  Transmission Date: 20070707
  Serious: Yes (Death, Life-Threatening, Disabling, Other)
  Sender: FDA-Public Use
  Company Number: HQWYE924124AUG06

PATIENT
  Sex: Male
  Weight: 62 kg

DRUGS (20)
  1. MYLOTARG [Suspect]
     Indication: ACUTE MYELOID LEUKAEMIA RECURRENT
     Route: 041
     Dates: start: 20060524, end: 20060524
  2. MYLOTARG [Suspect]
     Route: 041
     Dates: start: 20060614, end: 20060614
  3. AMLODIPINE BESYLATE [Concomitant]
     Dosage: 2.5 MG DAILY
     Route: 048
     Dates: start: 20060524, end: 20060623
  4. GASTER [Concomitant]
     Indication: PROPHYLAXIS
     Dosage: 20 MG DAILY
     Route: 048
     Dates: start: 20060524, end: 20060623
  5. BAKTAR [Concomitant]
     Indication: PROPHYLAXIS
     Dosage: ^2 DF/DAY^
     Route: 048
     Dates: start: 20060524, end: 20060623
  6. PREDONINE [Concomitant]
     Dosage: 5 MG DAILY
     Route: 048
     Dates: start: 20060524, end: 20060623
  7. NU-LOTAN [Concomitant]
     Dosage: 50 MG DAILY
     Route: 048
     Dates: start: 20060524, end: 20060623
  8. LASIX [Concomitant]
     Dosage: 20 MG DAILY
     Route: 048
     Dates: start: 20060524, end: 20060623
  9. URSO [Concomitant]
     Indication: PROPHYLAXIS
     Dosage: 600 MG DAILY
     Route: 048
     Dates: start: 20060524, end: 20060623
  10. MAGNESIUM OXIDE [Concomitant]
     Indication: PROPHYLAXIS
     Dosage: 750 MG DAILY
     Route: 048
     Dates: start: 20060524, end: 20060623
  11. EBRANTIL [Concomitant]
     Indication: URINARY RETENTION
     Dosage: 30 MG DAILY
     Route: 048
     Dates: start: 20060621, end: 20060623
  12. BESACOLIN [Concomitant]
     Indication: URINARY RETENTION
     Dosage: 60 MG DAILY
     Route: 048
     Dates: start: 20060621, end: 20060623
  13. IMMUNE GLOBULIN INTRAVENOUS (HUMAN) [Concomitant]
     Indication: PROPHYLAXIS
     Dosage: 5 G DAILY
     Route: 041
     Dates: start: 20060525, end: 20060526
  14. IMMUNE GLOBULIN INTRAVENOUS (HUMAN) [Concomitant]
     Dosage: 5 G DAILY
     Route: 042
     Dates: start: 20060608, end: 20060609
  15. IMMUNE GLOBULIN INTRAVENOUS (HUMAN) [Concomitant]
     Dosage: 5 G DAILY
     Route: 042
     Dates: start: 20060622, end: 20060623
  16. FIRSTCIN [Concomitant]
     Dosage: 2 G DAILY
     Route: 041
     Dates: start: 20060510, end: 20060529
  17. MEROPEN [Concomitant]
     Dosage: 1G DAILY
     Route: 041
     Dates: start: 20060529, end: 20060619
  18. CLINDAMYCIN PHOSPHATE [Concomitant]
     Dosage: 1200 MG DAILY
     Route: 041
     Dates: start: 20060601, end: 20060627
  19. MAXIPIME [Concomitant]
     Dosage: 2 G DAILY
     Route: 041
     Dates: start: 20060620, end: 20060627
  20. DIFLUCAN [Concomitant]
     Indication: PROPHYLAXIS
     Dosage: 200 MG DAILY
     Route: 048
     Dates: start: 20060524, end: 20060623

REACTIONS (7)
  - ANAEMIA [None]
  - CONDITION AGGRAVATED [None]
  - CYSTITIS HAEMORRHAGIC [None]
  - PLATELET COUNT DECREASED [None]
  - POSTRENAL FAILURE [None]
  - RETINAL HAEMORRHAGE [None]
  - SEPSIS [None]
